FAERS Safety Report 8896253 (Version 1)
Quarter: 2012Q4

REPORT INFORMATION
  Report Type: Spontaneous
  Country: US (occurrence: None)
  Receive Date: 20121106
  Receipt Date: 20121106
  Transmission Date: 20130627
  Serious: Yes (Other)
  Sender: FDA-Public Use
  Company Number: None

PATIENT
  Age: 64 Year
  Sex: Female
  Weight: 83.46 kg

DRUGS (2)
  1. FENOFIBRATE [Suspect]
     Indication: HIGH CHOLESTEROL
     Dates: start: 20121012, end: 20121015
  2. FENOFIBRATE [Suspect]
     Indication: MUSCLE CRAMP
     Dates: start: 20121012, end: 20121015

REACTIONS (2)
  - Flatulence [None]
  - Diarrhoea [None]
